FAERS Safety Report 4851246-X (Version None)
Quarter: 2005Q4

REPORT INFORMATION
  Report Type: 
  Country: None (occurrence: None)
  Receive Date: 20051208
  Receipt Date: 20051117
  Transmission Date: 20060501
  Serious: No
  Sender: FDA-Public Use
  Company Number: US200511001572

PATIENT
  Age: 70 Year
  Sex: Female

DRUGS (8)
  1. CYMBALTA [Suspect]
     Indication: NEUROPATHY
     Dosage: 30 MG, DAILY (1/D), ORAL; 60 MG, DAILY (1/D), ORAL
     Route: 048
     Dates: start: 20050901, end: 20051001
  2. CYMBALTA [Suspect]
     Indication: NEUROPATHY
     Dosage: 30 MG, DAILY (1/D), ORAL; 60 MG, DAILY (1/D), ORAL
     Route: 048
     Dates: start: 20051001
  3. TEGRETOL [Concomitant]
  4. TRIAMTERENE AND HYDROCHLOROTHIAZID   HARRIS  (HYDROCHLOROTHIAZIDE, TRI [Concomitant]
  5. CLONIDINE [Concomitant]
  6. ASPIRIN [Concomitant]
  7. VITAMINS [Concomitant]
  8. CALCIUM CARBONATE (CALCIUM CARBONATE) [Concomitant]

REACTIONS (4)
  - BLOOD GLUCOSE INCREASED [None]
  - CHROMATURIA [None]
  - URINE FLOW DECREASED [None]
  - URINE ODOUR ABNORMAL [None]
